FAERS Safety Report 18808242 (Version 1)
Quarter: 2021Q1

REPORT INFORMATION
  Report Type: Spontaneous
  Country: US (occurrence: US)
  Receive Date: 20210129
  Receipt Date: 20210129
  Transmission Date: 20210419
  Serious: Yes (Hospitalization)
  Sender: FDA-Public Use
  Company Number: None

PATIENT
  Age: 89 Year
  Sex: Female
  Weight: 42 kg

DRUGS (1)
  1. BAMLANIVIMAB. [Suspect]
     Active Substance: BAMLANIVIMAB
     Indication: COVID-19
     Dosage: ?          OTHER FREQUENCY:ONCE;?
     Route: 040
     Dates: start: 20210118, end: 20210118

REACTIONS (6)
  - Body temperature decreased [None]
  - Acute kidney injury [None]
  - Mental status changes [None]
  - White blood cell count increased [None]
  - Metabolic encephalopathy [None]
  - Dehydration [None]

NARRATIVE: CASE EVENT DATE: 20210126
